FAERS Safety Report 6223362-1 (Version None)
Quarter: 2009Q2

REPORT INFORMATION
  Report Type: 
  Country: None (occurrence: None)
  Receive Date: 20090611
  Receipt Date: 20090529
  Transmission Date: 20091009
  Serious: Yes (Hospitalization, Other)
  Sender: FDA-Public Use
  Company Number: US-ELI_LILLY_AND_COMPANY-US200905006011

PATIENT
  Sex: Female

DRUGS (9)
  1. FORTEO [Suspect]
     Dosage: UNK, UNK
     Dates: start: 20080716, end: 20090201
  2. FORTEO [Suspect]
     Dosage: UNK, UNK
     Dates: start: 20080716, end: 20090201
  3. PLAVIX [Concomitant]
     Dates: start: 20090401
  4. ANTIBIOTICS [Concomitant]
  5. RANEXA [Concomitant]
     Dosage: 500 MG, 2/D
  6. COREG [Concomitant]
     Dosage: 3.125 MG, 2/D
  7. ASPIRIN [Concomitant]
     Dosage: 81 MG, UNK
  8. GLIPIZIDE [Concomitant]
     Indication: DIABETES MELLITUS
     Dosage: 10 MG, UNK
  9. CRESTOR [Concomitant]
     Indication: BLOOD CHOLESTEROL

REACTIONS (8)
  - BONE PAIN [None]
  - CATHETERISATION CARDIAC [None]
  - FALL [None]
  - LOWER EXTREMITY MASS [None]
  - STENT PLACEMENT [None]
  - TOOTH DISORDER [None]
  - TOOTH INFECTION [None]
  - TOOTHACHE [None]
